FAERS Safety Report 14961386 (Version 2)
Quarter: 2018Q3

REPORT INFORMATION
  Report Type: Report from Study
  Country: US (occurrence: US)
  Receive Date: 20180601
  Receipt Date: 20180704
  Transmission Date: 20181010
  Serious: Yes (Hospitalization)
  Sender: FDA-Public Use
  Company Number: US-ROCHE-2116350

PATIENT
  Age: 62 Year
  Sex: Male
  Weight: 51.4 kg

DRUGS (15)
  1. CARBOPLATIN. [Suspect]
     Active Substance: CARBOPLATIN
     Dosage: DAY 29, CYCLE 1
     Route: 042
     Dates: start: 20171205
  2. PACLITAXEL. [Suspect]
     Active Substance: PACLITAXEL
     Indication: NON-SMALL CELL LUNG CANCER
     Dosage: DAY 1, CYCLE 1
     Route: 042
     Dates: start: 20171106
  3. ATEZOLIZUMAB. [Suspect]
     Active Substance: ATEZOLIZUMAB
     Route: 042
     Dates: start: 20171127
  4. PACLITAXEL. [Suspect]
     Active Substance: PACLITAXEL
     Route: 042
     Dates: start: 20171205
  5. ATEZOLIZUMAB. [Suspect]
     Active Substance: ATEZOLIZUMAB
     Indication: NON-SMALL CELL LUNG CANCER
     Dosage: DAY 1, CYCLE 1
     Route: 042
     Dates: start: 20171106
  6. ATEZOLIZUMAB. [Suspect]
     Active Substance: ATEZOLIZUMAB
     Route: 042
     Dates: start: 20180125
  7. CARBOPLATIN. [Suspect]
     Active Substance: CARBOPLATIN
     Route: 042
     Dates: start: 20180125
  8. PACLITAXEL. [Suspect]
     Active Substance: PACLITAXEL
     Route: 042
     Dates: start: 20180125
  9. ATEZOLIZUMAB. [Suspect]
     Active Substance: ATEZOLIZUMAB
     Route: 042
     Dates: start: 20180327
  10. CARBOPLATIN. [Suspect]
     Active Substance: CARBOPLATIN
     Dosage: DAY 22, CYCLE 1
     Route: 042
     Dates: start: 20171127
  11. CARBOPLATIN. [Suspect]
     Active Substance: CARBOPLATIN
     Dosage: DAY 8, CYCLE 1
     Route: 042
     Dates: start: 20171113
  12. ATEZOLIZUMAB. [Suspect]
     Active Substance: ATEZOLIZUMAB
     Route: 042
     Dates: start: 20180306
  13. CARBOPLATIN. [Suspect]
     Active Substance: CARBOPLATIN
     Indication: NON-SMALL CELL LUNG CANCER
     Dosage: DAY 1, CYCLE 1
     Route: 042
     Dates: start: 20171106
  14. PACLITAXEL. [Suspect]
     Active Substance: PACLITAXEL
     Route: 042
     Dates: start: 20171113
  15. PACLITAXEL. [Suspect]
     Active Substance: PACLITAXEL
     Route: 042
     Dates: start: 20171127

REACTIONS (4)
  - Respiratory failure [Unknown]
  - Pneumonia [Unknown]
  - Pneumonia [Unknown]
  - Tracheal fistula [Unknown]

NARRATIVE: CASE EVENT DATE: 20180421
